FAERS Safety Report 4436156-4 (Version None)
Quarter: 2004Q3

REPORT INFORMATION
  Report Type: 
  Country: None (occurrence: None)
  Receive Date: 20040826
  Receipt Date: 20040816
  Transmission Date: 20050211
  Serious: Yes (Life-Threatening, Hospitalization)
  Sender: FDA-Public Use
  Company Number: 2004228984DE

PATIENT
  Age: 63 Year
  Sex: Female
  Weight: 90 kg

DRUGS (5)
  1. COMPARATOR-TAMOXIFEN(COMPARATOR-TAMOXIFEN)(TAMOXIFEN) TABLET [Suspect]
     Indication: BREAST CANCER
     Dosage: 20 MG, QD, ORAL
     Route: 048
     Dates: start: 20020211, end: 20030701
  2. METOPROLOL [Concomitant]
  3. LEXOTANIL [Concomitant]
  4. JUNIK AUTOHALER [Concomitant]
  5. L-THYROXIN ^HENNING^ (LEVOTHYROXINE SODIUM) [Concomitant]

REACTIONS (1)
  - PANCREATITIS [None]
